FAERS Safety Report 11335246 (Version 2)
Quarter: 2015Q3

REPORT INFORMATION
  Report Type: Spontaneous
  Country: JP (occurrence: JP)
  Receive Date: 20150804
  Receipt Date: 20150819
  Transmission Date: 20151125
  Serious: Yes (Other)
  Sender: FDA-Public Use
  Company Number: JP-MUNDIPHARMA DS AND PHARMACOVIGILANCE-GBR-2015-0029598

PATIENT
  Age: 77 Year
  Sex: Male

DRUGS (2)
  1. AFINITOR [Interacting]
     Active Substance: EVEROLIMUS
     Indication: PRODUCT USED FOR UNKNOWN INDICATION
     Dosage: UNK
     Route: 048
     Dates: start: 20150618, end: 20150702
  2. NORSPAN [Suspect]
     Active Substance: BUPRENORPHINE
     Indication: PRODUCT USED FOR UNKNOWN INDICATION
     Dosage: 5 MCG, Q1H
     Route: 062
     Dates: start: 20150515

REACTIONS (1)
  - Drug metabolising enzyme decreased [Unknown]
